FAERS Safety Report 5712837-7 (Version None)
Quarter: 2008Q2

REPORT INFORMATION
  Report Type: 
  Country: None (occurrence: None)
  Receive Date: 20080422
  Receipt Date: 20080415
  Transmission Date: 20081010
  Serious: No
  Sender: FDA-Public Use
  Company Number: A0723213A

PATIENT
  Sex: Female

DRUGS (1)
  1. ZOVIRAX [Suspect]
     Indication: HERPES VIRUS INFECTION
     Dosage: 400MG TWICE PER DAY
     Route: 048
     Dates: start: 20070801, end: 20080411

REACTIONS (1)
  - NO ADVERSE EVENT [None]
